FAERS Safety Report 9514256 (Version 1)
Quarter: 2013Q3

REPORT INFORMATION
  Report Type: Report from Study
  Country: US (occurrence: US)
  Receive Date: 20130910
  Receipt Date: 20130910
  Transmission Date: 20140515
  Serious: Yes (Hospitalization)
  Sender: FDA-Public Use
  Company Number: US-ABBOTT-13P-163-1143282-00

PATIENT
  Age: 66 Year
  Sex: Female
  Weight: 49.03 kg

DRUGS (12)
  1. HUMIRA [Suspect]
     Indication: PSORIATIC ARTHROPATHY
     Dosage: ONE TIME DOSE
     Route: 058
     Dates: start: 20130815, end: 20130815
  2. HUMIRA [Suspect]
     Route: 058
     Dates: start: 20130823, end: 20130823
  3. TORSEMIDE [Concomitant]
     Indication: OEDEMA PERIPHERAL
  4. DILANTIN [Concomitant]
     Indication: CONVULSION
  5. PROZAC [Concomitant]
     Indication: DEPRESSION
  6. ALLEGRA [Concomitant]
     Indication: PRODUCT USED FOR UNKNOWN INDICATION
  7. ZANTAC [Concomitant]
     Indication: GASTROOESOPHAGEAL REFLUX DISEASE
  8. PROTONIX [Concomitant]
     Indication: GASTROOESOPHAGEAL REFLUX DISEASE
  9. NEURONTIN [Concomitant]
     Indication: CONVULSION
  10. POTASSIUM [Concomitant]
     Indication: BLOOD POTASSIUM DECREASED
  11. VITAMIN D [Concomitant]
     Indication: PRODUCT USED FOR UNKNOWN INDICATION
  12. CALCIUM [Concomitant]
     Indication: PRODUCT USED FOR UNKNOWN INDICATION

REACTIONS (8)
  - Fatigue [Recovered/Resolved]
  - Lethargy [Recovered/Resolved]
  - Diarrhoea [Recovered/Resolved]
  - Vomiting [Recovered/Resolved]
  - Cellulitis [Recovering/Resolving]
  - Fall [Recovered/Resolved]
  - Contusion [Recovering/Resolving]
  - Periorbital contusion [Recovering/Resolving]
